FAERS Safety Report 9377553 (Version 4)
Quarter: 2013Q3

REPORT INFORMATION
  Report Type: Spontaneous
  Country: BR (occurrence: BR)
  Receive Date: 20130701
  Receipt Date: 20130820
  Transmission Date: 20140515
  Serious: Yes (Hospitalization, Other)
  Sender: FDA-Public Use
  Company Number: BR-ELI_LILLY_AND_COMPANY-BR201306007588

PATIENT
  Age: 16 Year
  Sex: Female
  Weight: 71 kg

DRUGS (3)
  1. HUMALOG LISPRO [Suspect]
     Dosage: UNK, UNKNOWN
     Route: 065
     Dates: start: 201306
  2. HUMAN INSULIN (RDNA ORIGIN) NPH [Suspect]
     Dosage: UNK, UNKNOWN
     Route: 065
     Dates: start: 2012
  3. HUMAN INSULIN (RDNA ORIGIN) NPH [Suspect]
     Dosage: UNK, UNKNOWN
     Route: 065

REACTIONS (5)
  - Vomiting [Recovered/Resolved]
  - Feeling abnormal [Recovered/Resolved]
  - Incorrect product storage [Unknown]
  - Blood glucose increased [Recovered/Resolved]
  - Drug ineffective [Unknown]
